FAERS Safety Report 7557324-9 (Version None)
Quarter: 2011Q2

REPORT INFORMATION
  Report Type: 
  Country: None (occurrence: None)
  Receive Date: 20110616
  Receipt Date: 20110616
  Transmission Date: 20111010
  Serious: Yes (Other)
  Sender: FDA-Public Use
  Company Number: None

PATIENT
  Sex: Female
  Weight: 63.9572 kg

DRUGS (2)
  1. VENLAFAXINE [Suspect]
     Indication: ANXIETY
     Dosage: 75MG QD PO
     Route: 048
     Dates: start: 20110511
  2. VENLAFAXINE [Suspect]
     Indication: ANXIETY
     Dosage: 75MG QD PO
     Route: 048
     Dates: start: 20110604

REACTIONS (7)
  - ANXIETY [None]
  - CRYING [None]
  - PANIC DISORDER [None]
  - NERVOUSNESS [None]
  - TREMOR [None]
  - ACTIVITIES OF DAILY LIVING IMPAIRED [None]
  - IMPAIRED WORK ABILITY [None]
